FAERS Safety Report 9833225 (Version 2)
Quarter: 2014Q1

REPORT INFORMATION
  Report Type: Spontaneous
  Country: FR (occurrence: FR)
  Receive Date: 20140121
  Receipt Date: 20140121
  Transmission Date: 20141002
  Serious: Yes (Other)
  Sender: FDA-Public Use
  Company Number: ALCN2013FR006224

PATIENT
  Age: 38 Year
  Sex: Female
  Weight: 50 kg

DRUGS (1)
  1. CYCLOPENTOLATE HCL [Suspect]
     Indication: FUNDOSCOPY
     Dosage: 2 GTT,ONCE/SINGLE (1 GTT FOLLOWED BY A SECOND DROP 10 MINUTES LATER
     Route: 047
     Dates: start: 20131206, end: 20131206

REACTIONS (5)
  - Mydriasis [Recovered/Resolved]
  - Drug effect prolonged [Recovered/Resolved]
  - Eye pain [Recovered/Resolved]
  - Abnormal sensation in eye [Unknown]
  - Glassy eyes [Unknown]
